FAERS Safety Report 7200008-7 (Version None)
Quarter: 2010Q4

REPORT INFORMATION
  Report Type: 
  Country: None (occurrence: None)
  Receive Date: 20101228
  Receipt Date: 20101214
  Transmission Date: 20110411
  Serious: Yes (Life-Threatening)
  Sender: FDA-Public Use
  Company Number: GXKR2010GB14146

PATIENT
  Age: 74 Year
  Sex: Female

DRUGS (8)
  1. CIPROFLOXACIN [Suspect]
     Indication: LIVER ABSCESS
     Dosage: 500 MG, BID
     Route: 048
     Dates: start: 20101105, end: 20101109
  2. ADALAT [Concomitant]
  3. ACETYLSALICYLIC ACID SRT [Concomitant]
  4. ATENOLOL [Concomitant]
  5. ATORVASTATIN [Concomitant]
  6. MEROPENEM [Concomitant]
     Indication: LIVER ABSCESS
     Dosage: 500 MG, TID
     Route: 042
     Dates: start: 20101025, end: 20101104
  7. TAZOCIN [Concomitant]
     Indication: LIVER ABSCESS
     Dosage: 4.5 G, TID
     Route: 042
  8. TRIMETHOPRIM [Concomitant]
     Indication: URINARY TRACT INFECTION
     Dosage: 200 MG, BID
     Route: 048
     Dates: start: 20100928, end: 20101004

REACTIONS (2)
  - BLOOD CREATININE INCREASED [None]
  - TUBULOINTERSTITIAL NEPHRITIS [None]
